FAERS Safety Report 7943642-9 (Version None)
Quarter: 2011Q4

REPORT INFORMATION
  Report Type: 
  Country: None (occurrence: None)
  Receive Date: 20111128
  Receipt Date: 20111114
  Transmission Date: 20120403
  Serious: No
  Sender: FDA-Public Use
  Company Number: US-BAYER-2011-034611

PATIENT
  Age: 52 Year
  Sex: Male
  Weight: 75 kg

DRUGS (4)
  1. ALEVE (CAPLET) [Suspect]
     Dosage: 1 TAB AS NEEDED
     Route: 048
  2. TRAMADOL HCL [Concomitant]
  3. ALEVE (CAPLET) [Suspect]
     Indication: ARTHRITIS
     Dosage: 1 DF, TID
     Route: 048
     Dates: start: 20110412
  4. LIALDA [Concomitant]

REACTIONS (2)
  - NO ADVERSE EVENT [None]
  - ARTHRALGIA [None]
